FAERS Safety Report 17001602 (Version 1)
Quarter: 2019Q4

REPORT INFORMATION
  Report Type: Spontaneous
  Country: GB (occurrence: GB)
  Receive Date: 20191106
  Receipt Date: 20191106
  Transmission Date: 20200122
  Serious: Yes (Hospitalization)
  Sender: FDA-Public Use
  Company Number: GB-ASTRAZENECA-2019SF54189

PATIENT
  Age: 70 Year
  Sex: Male
  Weight: 82 kg

DRUGS (11)
  1. TICAGRELOR. [Suspect]
     Active Substance: TICAGRELOR
     Indication: TRANSIENT ISCHAEMIC ATTACK
     Route: 048
     Dates: start: 20190716, end: 20191009
  2. AMLODIPINE [Concomitant]
     Active Substance: AMLODIPINE BESYLATE
  3. ISOSORBIDE MONONITRATE. [Concomitant]
     Active Substance: ISOSORBIDE MONONITRATE
  4. NEBIVOLOL. [Concomitant]
     Active Substance: NEBIVOLOL
  5. ELANTAN LA [Concomitant]
     Active Substance: ISOSORBIDE MONONITRATE
  6. PANTOPRAZOLE SODIUM. [Concomitant]
     Active Substance: PANTOPRAZOLE SODIUM
  7. PARACETAMOL [Concomitant]
     Active Substance: ACETAMINOPHEN
  8. ACETYLSALICYLIC ACID [Concomitant]
     Active Substance: ASPIRIN
     Dosage: 75.0MG UNKNOWN
  9. RANOLAZINE. [Concomitant]
     Active Substance: RANOLAZINE
  10. RAMIPRIL. [Concomitant]
     Active Substance: RAMIPRIL
  11. ATORVASTATIN CALCIUM. [Concomitant]
     Active Substance: ATORVASTATIN CALCIUM

REACTIONS (5)
  - Cognitive disorder [Not Recovered/Not Resolved]
  - Contusion [Not Recovered/Not Resolved]
  - Altered visual depth perception [Unknown]
  - Dyspnoea [Recovering/Resolving]
  - Vertigo [Unknown]

NARRATIVE: CASE EVENT DATE: 201909
